FAERS Safety Report 20154734 (Version 5)
Quarter: 2022Q3

REPORT INFORMATION
  Report Type: Report from Study
  Country: DO (occurrence: DO)
  Receive Date: 20211207
  Receipt Date: 20220715
  Transmission Date: 20221027
  Serious: Yes (Other)
  Sender: FDA-Public Use
  Company Number: DO-NOVARTISPH-NVSC2020DO309807

PATIENT
  Age: 33 Year
  Sex: Female

DRUGS (5)
  1. KISQALI [Suspect]
     Active Substance: RIBOCICLIB
     Indication: Breast cancer
     Dosage: 600 MG, QD
     Route: 048
     Dates: start: 20200715
  2. KISQALI [Suspect]
     Active Substance: RIBOCICLIB
     Dosage: 600 MG, QD
     Route: 048
     Dates: start: 20200812
  3. KISQALI [Suspect]
     Active Substance: RIBOCICLIB
     Dosage: 200 MG, QD
     Route: 048
  4. FEMARA [Suspect]
     Active Substance: LETROZOLE
     Indication: Breast cancer
     Dosage: 600 MG, QD
     Route: 048
     Dates: start: 20200812
  5. FEMARA [Suspect]
     Active Substance: LETROZOLE
     Dosage: 200 MG, QD
     Route: 048

REACTIONS (30)
  - Bone cancer [Unknown]
  - Breast cancer [Unknown]
  - Malignant neoplasm progression [Unknown]
  - Blood pressure increased [Unknown]
  - Insomnia [Unknown]
  - Tremor [Unknown]
  - Eye pain [Unknown]
  - Decreased immune responsiveness [Unknown]
  - Nervousness [Unknown]
  - Malaise [Unknown]
  - Nausea [Recovered/Resolved]
  - Dizziness [Recovered/Resolved]
  - Weight increased [Unknown]
  - Stress [Unknown]
  - Facial pain [Unknown]
  - Pain [Unknown]
  - Bone disorder [Unknown]
  - Tachycardia [Recovered/Resolved]
  - White blood cell count decreased [Unknown]
  - Peripheral swelling [Unknown]
  - Movement disorder [Unknown]
  - Gait disturbance [Unknown]
  - Swelling face [Unknown]
  - Joint stiffness [Unknown]
  - Anxiety [Unknown]
  - Dyspnoea [Unknown]
  - Exercise tolerance decreased [Unknown]
  - Depression [Unknown]
  - Skin atrophy [Unknown]
  - Chills [Unknown]

NARRATIVE: CASE EVENT DATE: 20200715
